FAERS Safety Report 9456528 (Version 2)
Quarter: 2013Q3

REPORT INFORMATION
  Report Type: Report from Study
  Country: DE (occurrence: DE)
  Receive Date: 20130813
  Receipt Date: 20130821
  Transmission Date: 20140515
  Serious: Yes (Hospitalization)
  Sender: FDA-Public Use
  Company Number: DE-UCBSA-094668

PATIENT
  Sex: Female

DRUGS (5)
  1. CERTOLIZUMAB [Suspect]
     Indication: RHEUMATOID ARTHRITIS
     Dosage: 200 MG
  2. CERTOLIZUMAB [Suspect]
     Indication: RHEUMATOID ARTHRITIS
     Dosage: 400 MG
     Dates: start: 201111
  3. LEFLUNOMIDE [Concomitant]
     Indication: RHEUMATOID ARTHRITIS
     Dosage: 20 (UNITS UNSPECIFIED)
  4. METHOTREXATE [Concomitant]
     Indication: RHEUMATOID ARTHRITIS
     Dosage: 15 MG/W
     Dates: start: 201202
  5. PREDNISOLONE [Concomitant]
     Dates: start: 201208

REACTIONS (1)
  - Perforated ulcer [Recovered/Resolved]
